FAERS Safety Report 5403897-1 (Version None)
Quarter: 2007Q3

REPORT INFORMATION
  Report Type: 
  Country: None (occurrence: None)
  Receive Date: 20070713
  Receipt Date: 20061012
  Transmission Date: 20080115
  Serious: Yes (Hospitalization)
  Sender: FDA-Public Use
  Company Number: REM_00286_2006

PATIENT
  Age: 57 Year
  Sex: Male
  Weight: 73.5 kg

DRUGS (7)
  1. REMODULIN [Suspect]
     Indication: PULMONARY HYPERTENSION
     Dosage: 21 NG/KG/MIN CONTINUOUS IV
     Route: 042
     Dates: start: 20050711
  2. LACTULOSE [Concomitant]
  3. BUMEX [Concomitant]
  4. PROTONIX [Concomitant]
  5. DIGOXIN [Concomitant]
  6. OXYCODONE HCL [Concomitant]
  7. OXYGEN [Concomitant]

REACTIONS (4)
  - HYPONATRAEMIA [None]
  - OEDEMA [None]
  - STAPHYLOCOCCAL INFECTION [None]
  - STENOTROPHOMONAS SEPSIS [None]
